FAERS Safety Report 6260786-0 (Version None)
Quarter: 2009Q3

REPORT INFORMATION
  Report Type: 
  Country: None (occurrence: None)
  Receive Date: 20090706
  Receipt Date: 20090622
  Transmission Date: 20100115
  Serious: Yes (Hospitalization)
  Sender: FDA-Public Use
  Company Number: 8048070

PATIENT
  Sex: Male
  Weight: 55.3 kg

DRUGS (17)
  1. CIMZIA [Suspect]
     Indication: CROHN'S DISEASE
     Dosage: 400 MG SC
     Route: 058
     Dates: start: 20090201
  2. AMOXICILLIN [Suspect]
     Indication: ENDODONTIC PROCEDURE
     Dates: start: 20090601, end: 20090601
  3. PANCREASE MT [Suspect]
     Dosage: 2 DF 3/D PO
     Route: 048
     Dates: end: 20090501
  4. FOLIC ACID [Concomitant]
  5. AMLODIPINE BESYLATE [Concomitant]
  6. OMEPRAZOLE [Concomitant]
  7. CALCIUM W/VITAMIN D [Concomitant]
  8. MAGNESIUM SULFATE [Concomitant]
  9. ACIDOPHILUS [Concomitant]
  10. METHADONE HCL [Concomitant]
  11. VITAMIN B-12 [Concomitant]
  12. MIACALCIN [Concomitant]
  13. ATENOLOL [Concomitant]
  14. OXYCONTIN [Concomitant]
  15. TEMAZEPAM [Concomitant]
  16. POTASSIUM CHLORIDE [Concomitant]
  17. PREDNISONE [Concomitant]

REACTIONS (8)
  - ARTHRALGIA [None]
  - CYANOSIS [None]
  - FREQUENT BOWEL MOVEMENTS [None]
  - HAEMOGLOBIN DECREASED [None]
  - NAUSEA [None]
  - NEUROPATHY PERIPHERAL [None]
  - RASH [None]
  - SWELLING FACE [None]
